FAERS Safety Report 4896315-3 (Version None)
Quarter: 2006Q1

REPORT INFORMATION
  Report Type: 
  Country: None (occurrence: None)
  Receive Date: 20060126
  Receipt Date: 20060119
  Transmission Date: 20060701
  Serious: Yes (Death)
  Sender: FDA-Public Use
  Company Number: 230078K05CAN

PATIENT
  Age: 43 Year
  Sex: Female
  Weight: 60 kg

DRUGS (3)
  1. REBIF [Suspect]
     Indication: MULTIPLE SCLEROSIS
     Dates: start: 20001218
  2. FLUPREDNIDENE ACETATE [Concomitant]
  3. MORPHINE [Concomitant]

REACTIONS (10)
  - ANOREXIA [None]
  - BRAIN NEOPLASM MALIGNANT [None]
  - HEADACHE [None]
  - LETHARGY [None]
  - NAUSEA [None]
  - NERVOUS SYSTEM DISORDER [None]
  - PAPILLOEDEMA [None]
  - VISUAL DISTURBANCE [None]
  - VOMITING [None]
  - WEIGHT DECREASED [None]
